FAERS Safety Report 24281679 (Version 3)
Quarter: 2025Q1

REPORT INFORMATION
  Report Type: Spontaneous
  Country: US (occurrence: US)
  Receive Date: 20240904
  Receipt Date: 20250222
  Transmission Date: 20250409
  Serious: No
  Sender: SANOFI AVENTIS
  Company Number: US-SA-2024SA255312

PATIENT
  Age: 56 Year
  Sex: Male

DRUGS (5)
  1. DUPIXENT [Suspect]
     Active Substance: DUPILUMAB
     Indication: Dermatitis atopic
     Route: 058
     Dates: start: 20240823, end: 20240823
  2. DUPIXENT [Suspect]
     Active Substance: DUPILUMAB
     Indication: Eczema
     Dosage: 300MG, QOW
     Route: 058
     Dates: start: 202409, end: 202501
  3. HYRIMOZ [Concomitant]
     Active Substance: ADALIMUMAB-ADAZ
  4. CYCLOSPORINE [Concomitant]
     Active Substance: CYCLOSPORINE
  5. RINVOQ [Concomitant]
     Active Substance: UPADACITINIB

REACTIONS (4)
  - Dermatitis atopic [Unknown]
  - Product dose omission issue [Unknown]
  - Eczema [Recovering/Resolving]
  - Drug ineffective [Unknown]

NARRATIVE: CASE EVENT DATE: 20240801
